FAERS Safety Report 8926587 (Version 2)
Quarter: 2013Q2

REPORT INFORMATION
  Report Type: Spontaneous
  Country: GB (occurrence: GB)
  Receive Date: 20121127
  Receipt Date: 20130523
  Transmission Date: 20140414
  Serious: Yes (Hospitalization, Other)
  Sender: FDA-Public Use
  Company Number: PHHY2012GB106530

PATIENT
  Sex: 0

DRUGS (11)
  1. MIRTAZAPINE [Suspect]
     Indication: DEPRESSION
     Dosage: 15 MG, UNK
     Route: 048
     Dates: start: 20121101, end: 20121112
  2. EVIPLERA [Suspect]
     Indication: HIV INFECTION
     Dosage: 225 MG, UNK
     Route: 048
  3. TELAPREVIR [Concomitant]
     Indication: HIV INFECTION
     Dosage: 2250 MG, UNK
     Route: 048
     Dates: start: 20121009
  4. TELAPREVIR [Concomitant]
     Indication: HEPATITIS C
  5. PEGYLATED INTERFERON ALFA-2A [Concomitant]
     Indication: HEPATITIS C
     Dosage: 180 ?G, UNK
     Route: 058
     Dates: start: 20120903
  6. RIBAVIRIN [Concomitant]
     Indication: HEPATITIS C
     Dosage: 1000 MG, UNK
     Route: 048
     Dates: start: 20120903
  7. ZOLPIDEM [Concomitant]
     Indication: INSOMNIA
     Dosage: 10 MG, UNK
     Route: 048
     Dates: start: 20121101
  8. SANDO K [Concomitant]
     Indication: BLOOD POTASSIUM DECREASED
     Dosage: 1 DF, TID
     Route: 048
     Dates: start: 20121106
  9. METOCLOPRAMIDE [Concomitant]
     Indication: NAUSEA
     Dosage: 10 MG, UNK
     Route: 048
     Dates: start: 20121008
  10. RANITIDINE [Concomitant]
  11. CYCLIZINE [Concomitant]

REACTIONS (5)
  - Disorientation [Recovering/Resolving]
  - Hallucination [Recovering/Resolving]
  - Confusional state [Recovering/Resolving]
  - Abnormal dreams [Recovering/Resolving]
  - Vomiting [Recovering/Resolving]
